FAERS Safety Report 9114720 (Version 1)
Quarter: 2013Q1

REPORT INFORMATION
  Report Type: Spontaneous
  Country: US (occurrence: US)
  Receive Date: 20130128
  Receipt Date: 20130128
  Transmission Date: 20140127
  Serious: Yes (Hospitalization)
  Sender: FDA-Public Use
  Company Number: US-BAYER-2013-008482

PATIENT
  Age: 47 Year
  Sex: Female
  Weight: 86.17 kg

DRUGS (15)
  1. BEYAZ [Suspect]
  2. YAZ [Suspect]
  3. YASMIN [Suspect]
  4. ACETAMINOPHEN [Concomitant]
     Dosage: 325 MG, UNK
     Route: 048
  5. SUNSCREEN [Concomitant]
     Dosage: SPF 50
     Route: 061
  6. PSEUDOEPHEDRINE [Concomitant]
     Dosage: 30 MG, UNK
     Route: 048
  7. LIPITOR [Concomitant]
     Dosage: 40 MG TABLET, ONE-HALF EVERY DAY;
     Route: 048
  8. METHOCARBAMOL [Concomitant]
     Dosage: 500 MG TABLET, TWO TABLETS FOUR TIMES A DAY
     Route: 048
  9. CELEBREX [Concomitant]
     Dosage: 100 MG, BID
     Route: 048
  10. LEVOMEFOLATE CALCIUM [Concomitant]
     Dosage: 0.451 MG, QD
     Route: 048
  11. CALCIUM CITRATE W/VITAMIN D NOS [Concomitant]
     Dosage: 315 MG-200 TABLET, TAKE 1 TABLET WITH BREAKFAST AND 1 TABLET WITH LUNCH
     Route: 048
  12. IBUPROFEN [Concomitant]
     Indication: PAIN
     Dosage: 400 MG 1-2 Q (INTERPRETED AS EVERY) 8 HOURS AS NEEDED
     Route: 048
  13. NORCO [Concomitant]
     Dosage: 7.5-325 MG TABLET, TAKE 1 TO 2 EVERY 4-6 HOURS AS NEEDED
  14. CALCIUM CARBONATE W/VITAMIN D NOS [Concomitant]
  15. NITROGLYCERINE [Concomitant]
     Indication: CHEST DISCOMFORT

REACTIONS (1)
  - Pulmonary embolism [Recovered/Resolved]
